FAERS Safety Report 15854364 (Version 1)
Quarter: 2019Q1

REPORT INFORMATION
  Report Type: Spontaneous
  Country: US (occurrence: US)
  Receive Date: 20190122
  Receipt Date: 20190122
  Transmission Date: 20190417
  Serious: No
  Sender: FDA-Public Use
  Company Number: US-AKRON, INC.-2061553

PATIENT
  Age: 67 Year
  Sex: Male

DRUGS (1)
  1. CLOBETASOL PROPIOATE TOPICAL SOLUTION [Suspect]
     Active Substance: CLOBETASOL PROPIONATE

REACTIONS (1)
  - Drug ineffective [Unknown]
